FAERS Safety Report 13716820 (Version 1)
Quarter: 2017Q3

REPORT INFORMATION
  Report Type: Spontaneous
  Country: US (occurrence: US)
  Receive Date: 20170703
  Receipt Date: 20170703
  Transmission Date: 20171127
  Serious: Yes (Other)
  Sender: FDA-Public Use
  Company Number: None

PATIENT
  Age: 67 Year
  Sex: Female

DRUGS (13)
  1. KLOR-CON [Concomitant]
     Active Substance: POTASSIUM CHLORIDE
  2. CAPECITABINE. [Suspect]
     Active Substance: CAPECITABINE
     Indication: NEOPLASM MALIGNANT
     Dosage: ?          OTHER DOSE:MG;?
     Route: 048
     Dates: start: 20170615, end: 20170629
  3. CARTIA XT [Concomitant]
     Active Substance: DILTIAZEM HYDROCHLORIDE
  4. LEVOFLOXACIN. [Concomitant]
     Active Substance: LEVOFLOXACIN
  5. OXYCODONE [Concomitant]
     Active Substance: OXYCODONE
  6. AYGESTIN [Concomitant]
     Active Substance: NORETHINDRONE ACETATE
  7. HCTZ [Concomitant]
     Active Substance: HYDROCHLOROTHIAZIDE
  8. MIDODRINE [Concomitant]
     Active Substance: MIDODRINE
  9. ONDANSETRON ODT [Concomitant]
     Active Substance: ONDANSETRON
  10. AMOXICILLIN. [Concomitant]
     Active Substance: AMOXICILLIN
  11. LIDOCAINE/PRILOCAINE [Concomitant]
     Active Substance: LIDOCAINE\PRILOCAINE
  12. XARELTO [Concomitant]
     Active Substance: RIVAROXABAN
  13. PROCHLORPERAZINE. [Concomitant]
     Active Substance: PROCHLORPERAZINE

REACTIONS (4)
  - Pain in extremity [None]
  - Peripheral swelling [None]
  - Pain [None]
  - Arthritis [None]

NARRATIVE: CASE EVENT DATE: 20170701
